FAERS Safety Report 6588067-6 (Version None)
Quarter: 2010Q1

REPORT INFORMATION
  Report Type: 
  Country: None (occurrence: None)
  Receive Date: 20100218
  Receipt Date: 20100205
  Transmission Date: 20100710
  Serious: Yes (Hospitalization)
  Sender: FDA-Public Use
  Company Number: PHHY2010FR04383

PATIENT
  Sex: Male

DRUGS (1)
  1. EXJADE [Suspect]
     Dosage: UNK
     Route: 048
     Dates: start: 20090521, end: 20090530

REACTIONS (21)
  - ABNORMAL BEHAVIOUR [None]
  - COAGULOPATHY [None]
  - COMA [None]
  - DISSEMINATED INTRAVASCULAR COAGULATION [None]
  - EXTENSOR PLANTAR RESPONSE [None]
  - GASTROINTESTINAL DISORDER [None]
  - HEART RATE INCREASED [None]
  - HYPERAMMONAEMIA [None]
  - HYPERREFLEXIA [None]
  - HYPOPHAGIA [None]
  - HYPOTENSION [None]
  - KETOSIS [None]
  - LIVER DISORDER [None]
  - LOSS OF CONSCIOUSNESS [None]
  - MYDRIASIS [None]
  - NAUSEA [None]
  - OBSESSIVE THOUGHTS [None]
  - PSYCHOMOTOR HYPERACTIVITY [None]
  - PYRAMIDAL TRACT SYNDROME [None]
  - RENAL FAILURE [None]
  - VOMITING [None]
